FAERS Safety Report 24668465 (Version 1)
Quarter: 2024Q4

REPORT INFORMATION
  Report Type: Other
  Country: FR (occurrence: FR)
  Receive Date: 20241127
  Receipt Date: 20241127
  Transmission Date: 20250115
  Serious: Yes (Hospitalization, Other)
  Sender: ZYDUS PHARM
  Company Number: None

PATIENT

DRUGS (6)
  1. ARIPIPRAZOLE [Suspect]
     Active Substance: ARIPIPRAZOLE
     Indication: Intentional overdose
     Dosage: NP:400 MG/28 DAYS
     Route: 048
     Dates: start: 20240905, end: 20240905
  2. LORAZEPAM [Suspect]
     Active Substance: LORAZEPAM
     Indication: Intentional overdose
     Dosage: 75 MILLIGRAM, 1 TOTAL
     Route: 048
     Dates: start: 20240905, end: 20240905
  3. TERALITHE [Suspect]
     Active Substance: LITHIUM CARBONATE
     Indication: Intentional overdose
     Dosage: 2.8 GRAM, 1 TOTAL
     Route: 048
     Dates: start: 20240905, end: 20240905
  4. QUETIAPINE FUMARATE [Suspect]
     Active Substance: QUETIAPINE FUMARATE
     Indication: Intentional overdose
     Dosage: 2.8 GRAM, 1 TOTAL
     Route: 048
     Dates: start: 20240905, end: 20240905
  5. QUETIAPINE FUMARATE [Suspect]
     Active Substance: QUETIAPINE FUMARATE
     Dosage: 300 MILLIGRAM, ONCE IN A DAY
     Route: 048
     Dates: start: 20240905, end: 20240905
  6. LAMOTRIGINE [Suspect]
     Active Substance: LAMOTRIGINE
     Indication: Intentional overdose
     Dosage: UNK
     Route: 065

REACTIONS (7)
  - Disorientation [Unknown]
  - Confusional state [Unknown]
  - Poisoning deliberate [Recovered/Resolved]
  - Loss of consciousness [Unknown]
  - Major depression [Unknown]
  - Vomiting [Unknown]
  - Somnolence [Recovered/Resolved]

NARRATIVE: CASE EVENT DATE: 20240905
